FAERS Safety Report 20704600 (Version 1)
Quarter: 2022Q2

REPORT INFORMATION
  Report Type: Spontaneous
  Country: NL (occurrence: NL)
  Receive Date: 20220413
  Receipt Date: 20220413
  Transmission Date: 20220721
  Serious: Yes (Hospitalization, Other)
  Sender: FDA-Public Use
  Company Number: NL-BRISTOL-MYERS SQUIBB COMPANY-2022-018955

PATIENT
  Age: 65 Year
  Sex: Female

DRUGS (4)
  1. REVLIMID [Suspect]
     Active Substance: LENALIDOMIDE
     Indication: Follicular lymphoma stage III
     Dosage: DOSE : 20 MG.;     FREQ : ^QD^
     Route: 048
     Dates: start: 20220302, end: 20220316
  2. EPCORITAMAB [Suspect]
     Active Substance: EPCORITAMAB
     Indication: Follicular lymphoma stage III
     Dosage: WEEKLY
     Route: 058
     Dates: start: 20220323
  3. RITUXIMAB [Suspect]
     Active Substance: RITUXIMAB
     Indication: Follicular lymphoma stage III
     Dosage: WEEKLY
     Route: 042
     Dates: start: 20220309, end: 20220309
  4. RITUXIMAB [Suspect]
     Active Substance: RITUXIMAB
     Dosage: WEEKLY
     Route: 042
     Dates: start: 20220323

REACTIONS (1)
  - Toxic skin eruption [Not Recovered/Not Resolved]

NARRATIVE: CASE EVENT DATE: 20220313
